FAERS Safety Report 15041567 (Version 1)
Quarter: 2018Q2

REPORT INFORMATION
  Report Type: Spontaneous
  Country: US (occurrence: US)
  Receive Date: 20180621
  Receipt Date: 20180621
  Transmission Date: 20180711
  Serious: No
  Sender: FDA-Public Use
  Company Number: PHHY2018US026641

PATIENT
  Age: 59 Year
  Sex: Male

DRUGS (2)
  1. VEREGEN [Suspect]
     Active Substance: SINECATECHINS
     Indication: ANOGENITAL WARTS
     Dosage: UNK UNK, TID (1/8 INCH TID)
     Route: 061
     Dates: start: 20091006, end: 20091018
  2. EXFORGE [Suspect]
     Active Substance: AMLODIPINE BESYLATE\VALSARTAN
     Indication: PRODUCT USED FOR UNKNOWN INDICATION
     Dosage: 1 DF, QD
     Route: 048

REACTIONS (3)
  - Application site papules [Unknown]
  - Skin warm [Unknown]
  - Erythema [Unknown]

NARRATIVE: CASE EVENT DATE: 20091013
